FAERS Safety Report 19009900 (Version 1)
Quarter: 2021Q1

REPORT INFORMATION
  Report Type: Spontaneous
  Country: IL (occurrence: IL)
  Receive Date: 20210315
  Receipt Date: 20210315
  Transmission Date: 20210420
  Serious: Yes (Other)
  Sender: FDA-Public Use
  Company Number: NVSC2021IL054134

PATIENT
  Age: 74 Year
  Sex: Male

DRUGS (1)
  1. NILOTINIB [Suspect]
     Active Substance: NILOTINIB
     Indication: CHRONIC MYELOID LEUKAEMIA
     Dosage: 200, BID (STARTED A FEW MONTHS AGO)
     Route: 065

REACTIONS (6)
  - Varices oesophageal [Unknown]
  - Portal hypertension [Unknown]
  - Splenomegaly [Unknown]
  - Liver disorder [Unknown]
  - Pleural effusion [Unknown]
  - Liver function test abnormal [Unknown]
